FAERS Safety Report 7760923-2 (Version None)
Quarter: 2011Q3

REPORT INFORMATION
  Report Type: 
  Country: None (occurrence: None)
  Receive Date: 20110919
  Receipt Date: 20110901
  Transmission Date: 20111222
  Serious: Yes (Hospitalization)
  Sender: FDA-Public Use
  Company Number: PHFR2011GB02317

PATIENT
  Sex: Male

DRUGS (7)
  1. CLOZAPINE [Suspect]
     Indication: SCHIZOPHRENIA
     Dosage: 500 MG/DAY
     Route: 048
     Dates: start: 20050101
  2. ZANTAC [Concomitant]
     Indication: REFLUX GASTRITIS
     Dosage: 30 MG/DAY
     Route: 048
  3. AMISULPRIDE [Suspect]
     Dosage: 600 MG/DAY
     Route: 048
  4. DIAZEPAM [Concomitant]
     Indication: ANXIETY
     Dosage: 10 MG/DAY
     Route: 048
  5. CLOZAPINE [Suspect]
     Route: 048
     Dates: start: 20070919, end: 20110325
  6. CLOZAPINE [Suspect]
     Dosage: UNK
     Route: 048
     Dates: start: 20110331
  7. PROMETHAZINE [Concomitant]
     Indication: ANXIETY
     Dosage: 50 MG/DAY
     Route: 048

REACTIONS (2)
  - SCHIZOPHRENIA [None]
  - APPENDICITIS [None]
